FAERS Safety Report 7414578-7 (Version None)
Quarter: 2011Q2

REPORT INFORMATION
  Report Type: 
  Country: None (occurrence: None)
  Receive Date: 20110414
  Receipt Date: 20110404
  Transmission Date: 20111010
  Serious: Yes (Hospitalization, Other)
  Sender: FDA-Public Use
  Company Number: FR-BRISTOL-MYERS SQUIBB COMPANY-15655970

PATIENT
  Age: 85 Year
  Sex: Female

DRUGS (2)
  1. OROKEN [Suspect]
     Indication: BRONCHITIS
     Dates: start: 20110203, end: 20110207
  2. COUMADIN [Suspect]
     Indication: ATRIAL FIBRILLATION
     Dates: start: 20110124, end: 20110207

REACTIONS (6)
  - ANAEMIA [None]
  - BRONCHITIS [None]
  - CONSTIPATION [None]
  - HYPOPROTHROMBINAEMIA [None]
  - MALNUTRITION [None]
  - GASTROINTESTINAL ULCER HAEMORRHAGE [None]
